FAERS Safety Report 23304550 (Version 1)
Quarter: 2023Q4

REPORT INFORMATION
  Report Type: Spontaneous
  Country: KR (occurrence: KR)
  Receive Date: 20231218
  Receipt Date: 20231218
  Transmission Date: 20240110
  Serious: Yes (Other)
  Sender: FDA-Public Use
  Company Number: KR-MACLEODS PHARMACEUTICALS US LTD-MAC2023044793

PATIENT

DRUGS (4)
  1. METHIMAZOLE [Suspect]
     Active Substance: METHIMAZOLE
     Indication: Toxic goitre
     Dosage: 20 MILLIGRAM, QD
     Route: 065
     Dates: start: 20151201
  2. METHIMAZOLE [Suspect]
     Active Substance: METHIMAZOLE
     Dosage: 10 MILLIGRAM, QD
     Route: 065
     Dates: start: 20160203
  3. DIAZEPAM [Concomitant]
     Active Substance: DIAZEPAM
     Indication: Toxic goitre
     Dosage: 18 MILLIGRAM, QD
     Route: 065
     Dates: start: 2015
  4. DIAZEPAM [Concomitant]
     Active Substance: DIAZEPAM
     Dosage: 4 MILLIGRAM, QD
     Route: 065
     Dates: start: 20151201

REACTIONS (2)
  - Hypothyroidism [Unknown]
  - Drug resistance [Unknown]
